FAERS Safety Report 23674418 (Version 1)
Quarter: 2024Q1

REPORT INFORMATION
  Report Type: Spontaneous
  Country: US (occurrence: None)
  Receive Date: 20240326
  Receipt Date: 20240326
  Transmission Date: 20240410
  Serious: No
  Sender: FDA-Public Use
  Company Number: 2024A056447

PATIENT
  Sex: Female

DRUGS (2)
  1. FARXIGA [Suspect]
     Active Substance: DAPAGLIFLOZIN PROPANEDIOL
     Route: 048
  2. MONISTAT [Suspect]
     Active Substance: MICONAZOLE NITRATE
     Dosage: GIVEN 2 PILLS, ONE THAT SHE TOOK THE FIRST DAY AND THEN HAD TO WAIT 3 MORE DAYS TO TAKE THE SECON...
     Route: 048

REACTIONS (3)
  - Vulvovaginal mycotic infection [Unknown]
  - Vulvovaginal discomfort [Unknown]
  - Intentional product misuse [Unknown]
